FAERS Safety Report 7615615-7 (Version None)
Quarter: 2011Q3

REPORT INFORMATION
  Report Type: 
  Country: None (occurrence: None)
  Receive Date: 20110711
  Receipt Date: 20110612
  Transmission Date: 20111222
  Serious: Yes (Death, Hospitalization)
  Sender: FDA-Public Use
  Company Number: 15555014

PATIENT
  Age: 63 Year
  Sex: Male

DRUGS (8)
  1. ACENOCOUMAROL (ACENOCOUMAROL) [Concomitant]
  2. METFORMIN (METFORMIN HCL) [Concomitant]
  3. GLYBURIDE [Concomitant]
  4. PLACEBO [Suspect]
     Indication: THROMBOSIS PROPHYLAXIS
     Dosage: ORAL
     Route: 048
     Dates: start: 20090223, end: 20110214
  5. LEVOTHYROXINE SODIUM [Concomitant]
  6. WARFARIN SODIUM [Suspect]
     Indication: THROMBOSIS PROPHYLAXIS
     Dosage: 6.28 MILLIGRAM 1 DAY ORAL
     Route: 048
     Dates: start: 20090323, end: 20110214
  7. ENALAPRIL MALEATE [Concomitant]
  8. ATENOLOL [Concomitant]

REACTIONS (15)
  - CHILLS [None]
  - HAEMOGLOBIN DECREASED [None]
  - EMPHYSEMA [None]
  - ATRIAL FIBRILLATION [None]
  - HYPOXIA [None]
  - PAIN IN EXTREMITY [None]
  - ESCHERICHIA TEST POSITIVE [None]
  - HYPOTENSION [None]
  - BLOOD GLUCOSE DECREASED [None]
  - MULTI-ORGAN FAILURE [None]
  - OSTEOARTHRITIS [None]
  - LIVER SCAN ABNORMAL [None]
  - RENAL FAILURE [None]
  - SYSTEMIC INFLAMMATORY RESPONSE SYNDROME [None]
  - HYPERTENSION [None]
